FAERS Safety Report 7723110-X (Version None)
Quarter: 2011Q3

REPORT INFORMATION
  Report Type: 
  Country: None (occurrence: None)
  Receive Date: 20110901
  Receipt Date: 20110823
  Transmission Date: 20111222
  Serious: Yes (Hospitalization)
  Sender: FDA-Public Use
  Company Number: FR-UCBSA-039865

PATIENT
  Sex: Female

DRUGS (5)
  1. VIMPAT [Suspect]
     Route: 048
     Dates: start: 20110101, end: 20110715
  2. KEPPRA [Concomitant]
     Indication: EPILEPSY
     Dosage: DAILY DOSE: 1000MG + 2000MG
     Route: 048
     Dates: start: 20090101
  3. TOPIRAMATE [Concomitant]
     Indication: EPILEPSY
     Dates: end: 20110601
  4. VIMPAT [Suspect]
     Indication: EPILEPSY
     Dosage: 15/JUN/2011TO ??/JUN/2011: 50MG TWICE DAILY DURING ONE WEEK: 50MG +100 MG DAILY DURING ONE WEEK
     Route: 048
     Dates: start: 20110622, end: 20110101
  5. SPECIAFOLDINE [Concomitant]
     Indication: VITAMIN SUPPLEMENTATION
     Dosage: DAILY DOSE: 10 MG
     Route: 048
     Dates: start: 20110214

REACTIONS (4)
  - VERTIGO [None]
  - NAUSEA [None]
  - DIPLOPIA [None]
  - CONVULSION [None]
